FAERS Safety Report 8301128-6 (Version None)
Quarter: 2012Q2

REPORT INFORMATION
  Report Type: 
  Country: None (occurrence: None)
  Receive Date: 20120420
  Receipt Date: 20120406
  Transmission Date: 20120825
  Serious: Yes (Other)
  Sender: FDA-Public Use
  Company Number: JP-VERTEX PHARMACEUTICALS INC.-AE-2012-005172

PATIENT
  Age: 57 Year
  Sex: Male

DRUGS (5)
  1. RIKKUNSHI-TO [Concomitant]
     Route: 048
     Dates: start: 20120106, end: 20120119
  2. ALLEGRA [Concomitant]
     Route: 048
     Dates: start: 20120106, end: 20120119
  3. TELAVIC (TELAPREVIR) [Suspect]
     Indication: HEPATITIS C
     Route: 048
     Dates: start: 20120106, end: 20120301
  4. PEGINTERFERON ALFA-2B [Concomitant]
     Indication: HEPATITIS C
     Route: 051
     Dates: start: 20120106, end: 20120224
  5. REBETOL [Concomitant]
     Indication: HEPATITIS C
     Route: 048
     Dates: start: 20120106, end: 20120301

REACTIONS (1)
  - RETINOPATHY [None]
